FAERS Safety Report 12209510 (Version 1)
Quarter: 2016Q1

REPORT INFORMATION
  Report Type: Spontaneous
  Country: US (occurrence: US)
  Receive Date: 20160324
  Receipt Date: 20160324
  Transmission Date: 20160526
  Serious: No
  Sender: FDA-Public Use
  Company Number: US-009507513-1603USA010816

PATIENT
  Age: 21 Year
  Sex: Female
  Weight: 92.97 kg

DRUGS (1)
  1. NEXPLANON [Suspect]
     Active Substance: ETONOGESTREL
     Indication: CONTRACEPTION
     Dosage: ONE INSERTION
     Route: 059
     Dates: start: 20150916, end: 20160322

REACTIONS (3)
  - Device breakage [Recovered/Resolved]
  - Implant site rash [Unknown]
  - Pain in extremity [Unknown]

NARRATIVE: CASE EVENT DATE: 201602
